FAERS Safety Report 5483217-7 (Version None)
Quarter: 2007Q4

REPORT INFORMATION
  Report Type: 
  Country: None (occurrence: None)
  Receive Date: 20071009
  Receipt Date: 20070927
  Transmission Date: 20080405
  Serious: Yes (Hospitalization)
  Sender: FDA-Public Use
  Company Number: 013189

PATIENT
  Age: 75 Year
  Sex: Male
  Weight: 84 kg

DRUGS (20)
  1. PRIALTZ(ZICONOTIDE INTRATHECAL INFUSION) SOLUTION [Suspect]
     Indication: DIABETIC NEUROPATHY
     Dosage: 0.1 UG, ONCE/HOUR, INTRATHECAL; 0.16 UG, ONCE/HOUR, INTRATHECAL; 0.1 UG, ONCE/HOUR, INTRATHECAL; 0.1
     Route: 037
     Dates: start: 20070824, end: 20070828
  2. PRIALTZ(ZICONOTIDE INTRATHECAL INFUSION) SOLUTION [Suspect]
     Indication: PAIN MANAGEMENT
     Dosage: 0.1 UG, ONCE/HOUR, INTRATHECAL; 0.16 UG, ONCE/HOUR, INTRATHECAL; 0.1 UG, ONCE/HOUR, INTRATHECAL; 0.1
     Route: 037
     Dates: start: 20070824, end: 20070828
  3. PRIALTZ(ZICONOTIDE INTRATHECAL INFUSION) SOLUTION [Suspect]
     Indication: DIABETIC NEUROPATHY
     Dosage: 0.1 UG, ONCE/HOUR, INTRATHECAL; 0.16 UG, ONCE/HOUR, INTRATHECAL; 0.1 UG, ONCE/HOUR, INTRATHECAL; 0.1
     Route: 037
     Dates: start: 20070829, end: 20070829
  4. PRIALTZ(ZICONOTIDE INTRATHECAL INFUSION) SOLUTION [Suspect]
     Indication: PAIN MANAGEMENT
     Dosage: 0.1 UG, ONCE/HOUR, INTRATHECAL; 0.16 UG, ONCE/HOUR, INTRATHECAL; 0.1 UG, ONCE/HOUR, INTRATHECAL; 0.1
     Route: 037
     Dates: start: 20070829, end: 20070829
  5. PRIALTZ(ZICONOTIDE INTRATHECAL INFUSION) SOLUTION [Suspect]
     Indication: DIABETIC NEUROPATHY
     Dosage: 0.1 UG, ONCE/HOUR, INTRATHECAL; 0.16 UG, ONCE/HOUR, INTRATHECAL; 0.1 UG, ONCE/HOUR, INTRATHECAL; 0.1
     Route: 037
     Dates: start: 20070831, end: 20070905
  6. PRIALTZ(ZICONOTIDE INTRATHECAL INFUSION) SOLUTION [Suspect]
     Indication: PAIN MANAGEMENT
     Dosage: 0.1 UG, ONCE/HOUR, INTRATHECAL; 0.16 UG, ONCE/HOUR, INTRATHECAL; 0.1 UG, ONCE/HOUR, INTRATHECAL; 0.1
     Route: 037
     Dates: start: 20070831, end: 20070905
  7. PRIALTZ(ZICONOTIDE INTRATHECAL INFUSION) SOLUTION [Suspect]
     Indication: DIABETIC NEUROPATHY
     Dosage: 0.1 UG, ONCE/HOUR, INTRATHECAL; 0.16 UG, ONCE/HOUR, INTRATHECAL; 0.1 UG, ONCE/HOUR, INTRATHECAL; 0.1
     Route: 037
     Dates: start: 20070906
  8. PRIALTZ(ZICONOTIDE INTRATHECAL INFUSION) SOLUTION [Suspect]
     Indication: PAIN MANAGEMENT
     Dosage: 0.1 UG, ONCE/HOUR, INTRATHECAL; 0.16 UG, ONCE/HOUR, INTRATHECAL; 0.1 UG, ONCE/HOUR, INTRATHECAL; 0.1
     Route: 037
     Dates: start: 20070906
  9. ANTITHROMBOTIC AGENTS [Concomitant]
  10. HYDRALAZINE HCL [Concomitant]
  11. CIPRALEX /01588501/ (ESCITALOPRAM) [Concomitant]
  12. NORVASC /00972401/ (AMLODIPINE) [Concomitant]
  13. ALDACTONE [Concomitant]
  14. ENALAPRIL HCT (ENALAPRIL MALEATE, HYDROCHLOROTHIAZIDE) [Concomitant]
  15. MOLSIDOMINE (MOLSIDOMINE) [Concomitant]
  16. NEURONTIN [Concomitant]
  17. DIGIMERCK (DIGITOXIN) [Concomitant]
  18. PASPERTIN /00041902/ (METOCLOPRAMIDE HYDROCHLORIDE) [Concomitant]
  19. CYMBALTA [Concomitant]
  20. ALL OTHER THERAPEUTIC PRODUCTS [Concomitant]

REACTIONS (6)
  - ALANINE AMINOTRANSFERASE INCREASED [None]
  - ASPARTATE AMINOTRANSFERASE INCREASED [None]
  - EPILEPSY [None]
  - MOOD ALTERED [None]
  - SUICIDAL IDEATION [None]
  - SYNCOPE [None]
